FAERS Safety Report 7744560-1 (Version None)
Quarter: 2011Q3

REPORT INFORMATION
  Report Type: 
  Country: None (occurrence: None)
  Receive Date: 20110912
  Receipt Date: 20110908
  Transmission Date: 20111222
  Serious: Yes (Other)
  Sender: FDA-Public Use
  Company Number: US-PFIZER INC-2011211521

PATIENT
  Sex: Female
  Weight: 99.8 kg

DRUGS (3)
  1. GALLIUM [Concomitant]
     Dosage: UNK
  2. ZANAFLEX [Concomitant]
     Dosage: UNK
  3. LYRICA [Suspect]
     Indication: FIBROMYALGIA
     Dosage: 100 MG, 3X/DAY
     Route: 048
     Dates: start: 20060101, end: 20110801

REACTIONS (5)
  - ADRENAL NEOPLASM [None]
  - HEPATIC HAEMORRHAGE [None]
  - PAIN [None]
  - GALLBLADDER DISORDER [None]
  - LIVER DISORDER [None]
